FAERS Safety Report 8385905-1 (Version None)
Quarter: 2012Q2

REPORT INFORMATION
  Report Type: 
  Country: None (occurrence: None)
  Receive Date: 20120525
  Receipt Date: 20120518
  Transmission Date: 20120825
  Serious: Yes (Death)
  Sender: FDA-Public Use
  Company Number: KR-MPIJNJ-2012-02473

PATIENT

DRUGS (4)
  1. PREDNISOLONE [Suspect]
     Indication: MULTIPLE MYELOMA
     Dosage: 60 MG/M2, UNK
     Route: 048
     Dates: start: 20120314, end: 20120317
  2. MELPHALAN HYDROCHLORIDE [Suspect]
     Indication: MULTIPLE MYELOMA
     Dosage: 6 MG/M2, UNK
     Route: 048
     Dates: start: 20120314, end: 20120317
  3. DURAGESIC-100 [Concomitant]
     Indication: PAIN
     Dosage: 2.1 MG, UNK
     Dates: start: 20120228, end: 20120323
  4. VELCADE [Suspect]
     Indication: MULTIPLE MYELOMA
     Dosage: 1.3 MG/M2, UNK
     Route: 042
     Dates: start: 20120314, end: 20120317

REACTIONS (1)
  - PNEUMONIA ASPIRATION [None]
